FAERS Safety Report 5223390-9 (Version None)
Quarter: 2007Q1

REPORT INFORMATION
  Report Type: 
  Country: None (occurrence: None)
  Receive Date: 20070124
  Receipt Date: 20070117
  Transmission Date: 20070707
  Serious: Yes (Hospitalization)
  Sender: FDA-Public Use
  Company Number: 6029213

PATIENT
  Age: 59 Year
  Sex: Female

DRUGS (4)
  1. LEVOTHYROXINE SODIUM [Suspect]
     Indication: DRUG USE FOR UNKNOWN INDICATION
     Dosage: ORAL
     Route: 048
  2. KARDEGIC (75 MG, POWDER FOR ORAL SOLUTION) (ACETYLSALICYLATE LYSINE) [Suspect]
     Indication: DRUG USE FOR UNKNOWN INDICATION
     Dosage: ORAL
     Route: 048
  3. INIPOMP (TABLET) (PANTOPRAZOLE) [Suspect]
     Indication: DRUG USE FOR UNKNOWN INDICATION
     Dosage: ORAL
     Route: 048
     Dates: start: 20061212, end: 20061222
  4. ATACAND [Suspect]
     Indication: DRUG USE FOR UNKNOWN INDICATION
     Dosage: ORAL
     Route: 048

REACTIONS (3)
  - HAEMATOMA [None]
  - IDIOPATHIC THROMBOCYTOPENIC PURPURA [None]
  - MEGAKARYOCYTES INCREASED [None]
